FAERS Safety Report 7711883-1 (Version None)
Quarter: 2011Q3

REPORT INFORMATION
  Report Type: 
  Country: None (occurrence: None)
  Receive Date: 20110822
  Receipt Date: 20110804
  Transmission Date: 20111222
  Serious: Yes (Hospitalization)
  Sender: FDA-Public Use
  Company Number: 2011MA011354

PATIENT
  Age: 48 Year
  Sex: Female

DRUGS (2)
  1. PHENYTOIN [Suspect]
     Indication: CONVULSION PROPHYLAXIS
     Dosage: 300 MG;BID;
  2. AZITHROMYCIN [Suspect]
     Indication: UPPER RESPIRATORY TRACT INFECTION

REACTIONS (10)
  - UPPER RESPIRATORY TRACT INFECTION [None]
  - TOXICITY TO VARIOUS AGENTS [None]
  - CONFUSIONAL STATE [None]
  - MENTAL STATUS CHANGES [None]
  - GAIT DISTURBANCE [None]
  - FALL [None]
  - THROMBOCYTOPENIA [None]
  - DIZZINESS [None]
  - CONJUNCTIVAL HAEMORRHAGE [None]
  - SUBDURAL HAEMATOMA [None]
